FAERS Safety Report 8910623 (Version 1)
Quarter: 2012Q4

REPORT INFORMATION
  Report Type: Spontaneous
  Country: US (occurrence: None)
  Receive Date: 20121115
  Receipt Date: 20121115
  Transmission Date: 20130627
  Serious: Yes (Other)
  Sender: FDA-Public Use
  Company Number: None

PATIENT
  Age: 28 Year
  Sex: Male
  Weight: 124.74 kg

DRUGS (1)
  1. KETOROLAC [Suspect]
     Indication: PAIN RELIEF
     Route: 041
     Dates: start: 20120730, end: 20120730

REACTIONS (3)
  - Product quality issue [None]
  - Contusion [None]
  - Oedema peripheral [None]
